FAERS Safety Report 14373879 (Version 5)
Quarter: 2018Q2

REPORT INFORMATION
  Report Type: Report from Study
  Country: CA (occurrence: CA)
  Receive Date: 20180110
  Receipt Date: 20180525
  Transmission Date: 20180711
  Serious: Yes (Other)
  Sender: FDA-Public Use
  Company Number: CA-BRISTOL-MYERS SQUIBB COMPANY-BMS-2017-036519

PATIENT
  Age: 78 Year
  Sex: Male

DRUGS (3)
  1. ABATACEPT [Suspect]
     Active Substance: ABATACEPT
     Indication: PRODUCT USED FOR UNKNOWN INDICATION
     Dosage: 500 MG, Q4WK
     Route: 042
     Dates: start: 20170104
  2. ABATACEPT [Suspect]
     Active Substance: ABATACEPT
     Indication: RHEUMATOID ARTHRITIS
     Dosage: 750 MG, Q4WK
     Route: 042
     Dates: start: 20170104
  3. ABATACEPT [Suspect]
     Active Substance: ABATACEPT
     Indication: PRODUCT USED FOR UNKNOWN INDICATION
     Dosage: 500 MG, Q4WK
     Route: 042
     Dates: start: 20170914

REACTIONS (15)
  - Mobility decreased [Not Recovered/Not Resolved]
  - Speech disorder [Recovered/Resolved]
  - Dementia [Unknown]
  - Head injury [Unknown]
  - Peripheral swelling [Unknown]
  - Wound [Unknown]
  - Restlessness [Recovered/Resolved]
  - Cough [Unknown]
  - Aphasia [Unknown]
  - Gait disturbance [Not Recovered/Not Resolved]
  - Fall [Not Recovered/Not Resolved]
  - Face injury [Unknown]
  - General physical health deterioration [Not Recovered/Not Resolved]
  - Pneumonia [Unknown]
  - Pyrexia [Unknown]

NARRATIVE: CASE EVENT DATE: 20170412
